FAERS Safety Report 7944041-6 (Version None)
Quarter: 2011Q4

REPORT INFORMATION
  Report Type: 
  Country: None (occurrence: None)
  Receive Date: 20111128
  Receipt Date: 20111117
  Transmission Date: 20120403
  Serious: Yes (Hospitalization)
  Sender: FDA-Public Use
  Company Number: DE-ASTRAZENECA-2011SE70116

PATIENT
  Age: 15 Year
  Sex: Female

DRUGS (4)
  1. SEROQUEL [Suspect]
     Indication: DEPRESSION
     Route: 048
     Dates: start: 20111001
  2. AKINETON [Concomitant]
     Indication: EXTRAPYRAMIDAL DISORDER
  3. SEROQUEL [Suspect]
     Indication: POST-TRAUMATIC STRESS DISORDER
     Route: 048
     Dates: start: 20111001
  4. DIPIPERON [Concomitant]

REACTIONS (5)
  - HALLUCINATION, VISUAL [None]
  - OFF LABEL USE [None]
  - RESTLESSNESS [None]
  - DELIRIUM [None]
  - INSOMNIA [None]
